FAERS Safety Report 10612773 (Version 1)
Quarter: 2014Q4

REPORT INFORMATION
  Report Type: Spontaneous
  Country: CH (occurrence: CH)
  Receive Date: 20141127
  Receipt Date: 20141127
  Transmission Date: 20150529
  Serious: Yes (Death, Hospitalization)
  Sender: FDA-Public Use
  Company Number: PHHY2012CH136392

PATIENT

DRUGS (2)
  1. HYDERGIN [Suspect]
     Active Substance: ERGOLOID MESYLATES
     Dosage: UNK
     Route: 065
  2. HYDERGIN [Suspect]
     Active Substance: ERGOLOID MESYLATES
     Indication: PROPHYLAXIS
     Dosage: UNK , FORMULATION 4.5 FAS
     Route: 065

REACTIONS (4)
  - Circulatory collapse [Unknown]
  - Confusional state [Recovered/Resolved]
  - Death [Fatal]
  - Drug withdrawal syndrome [Recovered/Resolved]
